FAERS Safety Report 6580645-3 (Version None)
Quarter: 2010Q1

REPORT INFORMATION
  Report Type: 
  Country: None (occurrence: None)
  Receive Date: 20100203
  Receipt Date: 20100119
  Transmission Date: 20100710
  Serious: Yes (Other)
  Sender: FDA-Public Use
  Company Number: SPV1-2010-00078

PATIENT
  Sex: Male

DRUGS (2)
  1. ACETASOL HC [Suspect]
     Indication: MUCOPOLYSACCHARIDOSIS II
     Dosage: IV DRIP
     Route: 041
  2. ANTIHISTAMINES [Concomitant]

REACTIONS (6)
  - ANAPHYLACTIC REACTION [None]
  - INFUSION RELATED REACTION [None]
  - MUSCLE CONTRACTIONS INVOLUNTARY [None]
  - PYREXIA [None]
  - URTICARIA [None]
  - WHEEZING [None]
